FAERS Safety Report 12649546 (Version 1)
Quarter: 2016Q3

REPORT INFORMATION
  Report Type: Spontaneous
  Country: DE (occurrence: DE)
  Receive Date: 20160812
  Receipt Date: 20160812
  Transmission Date: 20161109
  Serious: Yes (Hospitalization, Other)
  Sender: FDA-Public Use
  Company Number: DE-MYLANLABS-2016M1033403

PATIENT

DRUGS (10)
  1. MIRTAZAPIN DURA 30 MG FILMTABLETTEN [Suspect]
     Active Substance: MIRTAZAPINE
     Indication: PRODUCT USED FOR UNKNOWN INDICATION
     Dosage: UNK (UNDETERMINED INTAKE)
     Route: 048
  2. PANTOPRAZOL [Suspect]
     Active Substance: PANTOPRAZOLE SODIUM
     Indication: PRODUCT USED FOR UNKNOWN INDICATION
     Dosage: UNK (UNDETERMINED INTAKE)
     Route: 048
  3. ACC /00082801/ [Suspect]
     Active Substance: ACETYLCYSTEINE
     Indication: PRODUCT USED FOR UNKNOWN INDICATION
     Dosage: UNK (UNDETERMINED INTAKE)
     Route: 048
  4. METFORMIN [Suspect]
     Active Substance: METFORMIN HYDROCHLORIDE
     Indication: PRODUCT USED FOR UNKNOWN INDICATION
     Dosage: UNK (UNDETERMINED INTAKE)
     Route: 048
  5. DOLO-DOBENDAN [Suspect]
     Active Substance: BENZOCAINE\CETYLPYRIDINIUM CHLORIDE
     Indication: PRODUCT USED FOR UNKNOWN INDICATION
     Dosage: UNK (UNDETERMINED INTAKE)
     Route: 048
  6. NOVALGIN [Suspect]
     Active Substance: METAMIZOLE SODIUM
     Indication: PRODUCT USED FOR UNKNOWN INDICATION
     Dosage: UNK (UNDETERMINED INTAKE)
     Route: 048
  7. CHLORPROTHIXEN                     /00012102/ [Suspect]
     Active Substance: CHLORPROTHIXENE HYDROCHLORIDE
     Indication: PRODUCT USED FOR UNKNOWN INDICATION
     Dosage: UNK (UNDETERMINED INTAKE)
     Route: 048
  8. QUETIAPIN [Suspect]
     Active Substance: QUETIAPINE
     Indication: PRODUCT USED FOR UNKNOWN INDICATION
     Dosage: UNK (UNDETERMINED INTAKE)
     Route: 048
  9. PIPAMPERON [Suspect]
     Active Substance: PIPAMPERONE HYDROCHLORIDE
     Indication: PRODUCT USED FOR UNKNOWN INDICATION
     Dosage: UNK (UNDETERMINED INTAKE)
     Route: 048
  10. ALCOHOL. [Suspect]
     Active Substance: ALCOHOL
     Indication: PRODUCT USED FOR UNKNOWN INDICATION
     Dosage: VODKA (0.5 BOTTLE) AND BEER (1 BOTTLE).

REACTIONS (3)
  - Hypotension [Unknown]
  - Suicidal behaviour [Unknown]
  - Psychotic disorder [Unknown]
